FAERS Safety Report 23769146 (Version 1)
Quarter: 2024Q2

REPORT INFORMATION
  Report Type: Spontaneous
  Country: US (occurrence: US)
  Receive Date: 20240422
  Receipt Date: 20240422
  Transmission Date: 20240716
  Serious: Yes (Hospitalization)
  Sender: FDA-Public Use
  Company Number: US-BRISTOL-MYERS SQUIBB COMPANY-2024-061048

PATIENT
  Age: 55 Year
  Sex: Male

DRUGS (7)
  1. OPDIVO [Suspect]
     Active Substance: NIVOLUMAB
     Indication: Thyroid cancer
     Dosage: DOSE : OPDIVO: 160MG. YERVOY:  68MG;     FREQ : ^EVERY 21 DAYS^ FOR BOTH TREATMENTS.; STRENGTH: 120M
     Route: 042
     Dates: start: 20240312
  2. YERVOY [Suspect]
     Active Substance: IPILIMUMAB
     Indication: Thyroid cancer
     Dosage: DOSE : OPDIVO: 160MG. YERVOY:  68MG;     FREQ : ^EVERY 21 DAYS^ FOR BOTH TREATMENTS.;
     Route: 042
     Dates: start: 20240312
  3. DABRAFENIB [Concomitant]
     Active Substance: DABRAFENIB
     Indication: Product used for unknown indication
  4. TRAMETINIB [Concomitant]
     Active Substance: TRAMETINIB
     Indication: Product used for unknown indication
  5. KEYTRUDA [Concomitant]
     Active Substance: PEMBROLIZUMAB
     Indication: Product used for unknown indication
  6. LENVIMA [Concomitant]
     Active Substance: LENVATINIB
     Indication: Product used for unknown indication
  7. CABOZANTINIB [Concomitant]
     Active Substance: CABOZANTINIB
     Indication: Product used for unknown indication

REACTIONS (3)
  - Hospitalisation [Unknown]
  - Off label use [Unknown]
  - Product dose omission issue [Unknown]

NARRATIVE: CASE EVENT DATE: 20240325
